FAERS Safety Report 16928303 (Version 3)
Quarter: 2022Q4

REPORT INFORMATION
  Report Type: Spontaneous
  Country: US (occurrence: US)
  Receive Date: 20191017
  Receipt Date: 20221120
  Transmission Date: 20230113
  Serious: Yes (Hospitalization)
  Sender: FDA-Public Use
  Company Number: US-BIOGEN-2019BI00796163

PATIENT
  Sex: Female

DRUGS (4)
  1. TECFIDERA [Suspect]
     Active Substance: DIMETHYL FUMARATE
     Indication: Multiple sclerosis
     Dosage: MAINTENANCE DOSE
     Route: 050
     Dates: start: 2013
  2. TECFIDERA [Suspect]
     Active Substance: DIMETHYL FUMARATE
     Route: 050
     Dates: start: 20140218
  3. TECFIDERA [Suspect]
     Active Substance: DIMETHYL FUMARATE
     Dosage: STARTING DOSE
     Route: 050
     Dates: start: 2013, end: 2013
  4. TECFIDERA [Suspect]
     Active Substance: DIMETHYL FUMARATE
     Route: 050
     Dates: start: 2013, end: 2020

REACTIONS (11)
  - Multiple sclerosis pseudo relapse [Unknown]
  - Dizziness [Unknown]
  - Nausea [Recovered/Resolved]
  - Stress [Not Recovered/Not Resolved]
  - Weight fluctuation [Unknown]
  - Pain [Unknown]
  - Peripheral swelling [Not Recovered/Not Resolved]
  - Muscle spasms [Not Recovered/Not Resolved]
  - Visual impairment [Not Recovered/Not Resolved]
  - Neuralgia [Not Recovered/Not Resolved]
  - Neuropathy peripheral [Not Recovered/Not Resolved]

NARRATIVE: CASE EVENT DATE: 20130101
